FAERS Safety Report 12375572 (Version 1)
Quarter: 2016Q2

REPORT INFORMATION
  Report Type: Spontaneous
  Country: US (occurrence: None)
  Receive Date: 20160516
  Receipt Date: 20160516
  Transmission Date: 20160815
  Serious: Yes (Other)
  Sender: FDA-Public Use
  Company Number: None

PATIENT
  Age: 10 Year
  Sex: Male

DRUGS (1)
  1. OMNITROPE [Suspect]
     Active Substance: SOMATROPIN
     Dosage: 2MG  6 DAYS/WEEK  SQ
     Route: 058

REACTIONS (1)
  - Rash pustular [None]

NARRATIVE: CASE EVENT DATE: 20160502
